FAERS Safety Report 25583382 (Version 1)
Quarter: 2025Q3

REPORT INFORMATION
  Report Type: Spontaneous
  Country: CN (occurrence: CN)
  Receive Date: 20250721
  Receipt Date: 20250721
  Transmission Date: 20251021
  Serious: Yes (Hospitalization)
  Sender: ACCORD
  Company Number: None

PATIENT
  Age: 69 Year
  Sex: Female
  Weight: 49 kg

DRUGS (5)
  1. TRASTUZUMAB [Suspect]
     Active Substance: TRASTUZUMAB
     Indication: Oesophageal carcinoma
     Dosage: STRENGTH: 150MG, 300 MILLIGRAM, QD, IV DRIP
     Route: 042
     Dates: start: 20240517, end: 20250517
  2. PACLITAXEL [Suspect]
     Active Substance: PACLITAXEL
     Indication: Product used for unknown indication
     Dosage: 200 MILLIGRAM, QD, IV DRIP
     Route: 042
     Dates: start: 20250517, end: 20250517
  3. CAMRELIZUMAB [Suspect]
     Active Substance: CAMRELIZUMAB
     Indication: Product used for unknown indication
     Dosage: 200 MILLIGRAM, QD, IV DRIP
     Route: 042
     Dates: start: 20250517, end: 20250517
  4. CISPLATIN [Suspect]
     Active Substance: CISPLATIN
     Indication: Product used for unknown indication
     Dosage: 40 MILLIGRAM, QD, IV DRIP
     Route: 042
     Dates: start: 20250517, end: 20250517
  5. CISPLATIN [Suspect]
     Active Substance: CISPLATIN
     Indication: Product used for unknown indication
     Dosage: 50 MILLIGRAM, QD, IV DRIP
     Route: 042
     Dates: start: 20250518, end: 20250518

REACTIONS (1)
  - Myelosuppression [Recovering/Resolving]

NARRATIVE: CASE EVENT DATE: 20250625
